FAERS Safety Report 9111079 (Version 1)
Quarter: 2013Q1

REPORT INFORMATION
  Report Type: Spontaneous
  Country: US (occurrence: US)
  Receive Date: 20130219
  Receipt Date: 20130219
  Transmission Date: 20140127
  Serious: No
  Sender: FDA-Public Use
  Company Number: US-BRISTOL-MYERS SQUIBB COMPANY-16946311

PATIENT
  Sex: 0
  Weight: 66.21 kg

DRUGS (4)
  1. ORENCIA [Suspect]
     Indication: RHEUMATOID ARTHRITIS
     Dosage: 1DF:125MG/ML
     Route: 058
  2. BIOTIN [Concomitant]
  3. HYDROXYCHLOROQUINE [Concomitant]
  4. IBUPROFEN [Concomitant]

REACTIONS (1)
  - Injection site swelling [Recovered/Resolved]
